FAERS Safety Report 24691091 (Version 1)
Quarter: 2024Q4

REPORT INFORMATION
  Report Type: Spontaneous
  Country: PT (occurrence: PT)
  Receive Date: 20241203
  Receipt Date: 20241203
  Transmission Date: 20250114
  Serious: Yes (Death, Hospitalization, Other)
  Sender: MERCK
  Company Number: PT-009507513-2411PRT012195

PATIENT
  Age: 73 Year
  Sex: Female

DRUGS (1)
  1. PEMBROLIZUMAB [Suspect]
     Active Substance: PEMBROLIZUMAB
     Indication: Cervix cancer metastatic
     Dosage: UNK

REACTIONS (2)
  - Pancytopenia [Fatal]
  - Gastroenteritis [Unknown]
